FAERS Safety Report 22305934 (Version 1)
Quarter: 2023Q2

REPORT INFORMATION
  Report Type: Spontaneous
  Country: US (occurrence: US)
  Receive Date: 20230511
  Receipt Date: 20230511
  Transmission Date: 20230722
  Serious: No
  Sender: FDA-Public Use
  Company Number: US-Amarin Pharma, Inc.-2022AMR001286

PATIENT

DRUGS (9)
  1. VASCEPA [Suspect]
     Active Substance: ICOSAPENT ETHYL
     Indication: Blood cholesterol
     Dosage: 1 CAPSULE IN AM WITH BREAKFAST, 1 AT LUNCH, 1 AT DINNER AND 1 AT BEDTIME WITH FOOD
     Route: 048
     Dates: start: 202209
  2. VASCEPA [Suspect]
     Active Substance: ICOSAPENT ETHYL
     Indication: Blood triglycerides
  3. METFORMIN [Concomitant]
     Active Substance: METFORMIN HYDROCHLORIDE
     Indication: Type 2 diabetes mellitus
     Dosage: PRIOR TO VASCEPA
  4. GLIPIZIDE ER [Concomitant]
     Active Substance: GLIPIZIDE
     Indication: Type 2 diabetes mellitus
     Dosage: 2 PILLS
  5. GLIPIZIDE ER [Concomitant]
     Active Substance: GLIPIZIDE
     Dosage: LOWERED FROM 2 PILLS TO 1 PILL WHEN VASCEPA WAS STARTED
  6. EZETIMIBE [Concomitant]
     Active Substance: EZETIMIBE
     Indication: Product used for unknown indication
     Dates: start: 202209
  7. JARDIANCE [Concomitant]
     Active Substance: EMPAGLIFLOZIN
     Indication: Type 2 diabetes mellitus
     Dosage: PRIOR TO VASCEPA
  8. OZEMPIC [Concomitant]
     Active Substance: SEMAGLUTIDE
     Indication: Type 2 diabetes mellitus
     Dosage: STARTED WITH VASCEPA
     Dates: start: 202209
  9. JANUVIA [Concomitant]
     Active Substance: SITAGLIPTIN PHOSPHATE
     Indication: Type 2 diabetes mellitus

REACTIONS (3)
  - Intentional product misuse [Recovered/Resolved]
  - Poor quality product administered [Recovered/Resolved]
  - Product colour issue [Unknown]
